FAERS Safety Report 25366710 (Version 2)
Quarter: 2025Q3

REPORT INFORMATION
  Report Type: Spontaneous
  Country: US (occurrence: US)
  Receive Date: 20250528
  Receipt Date: 20250924
  Transmission Date: 20251021
  Serious: Yes (Other)
  Sender: COOPERSURGICAL
  Company Number: US-COOPERSURGICAL, INC.-2025CPS004176

PATIENT
  Age: 26 Year
  Sex: Female
  Weight: 133.79 kg

DRUGS (4)
  1. PARAGARD T 380A [Suspect]
     Active Substance: COPPER
     Indication: Contraception
     Route: 015
     Dates: start: 20130308
  2. PROZAC [Concomitant]
     Active Substance: FLUOXETINE HYDROCHLORIDE
     Dates: start: 20230327
  3. ATIVAN [Concomitant]
     Active Substance: LORAZEPAM
     Dates: start: 20230322
  4. MIRENA [Suspect]
     Active Substance: LEVONORGESTREL
     Dates: start: 20230505

REACTIONS (20)
  - Uterine polyp [Unknown]
  - Device breakage [Recovered/Resolved]
  - Foreign body in urogenital tract [Recovered/Resolved]
  - Complication of device removal [Recovered/Resolved]
  - Embedded device [Recovered/Resolved]
  - Endometrial thickening [Unknown]
  - Depression [Not Recovered/Not Resolved]
  - Anxiety [Not Recovered/Not Resolved]
  - Emotional distress [Not Recovered/Not Resolved]
  - Asthenia [Unknown]
  - Pollakiuria [Unknown]
  - Off label use [Unknown]
  - Device use issue [Unknown]
  - Muscle spasms [Unknown]
  - Hypomenorrhoea [Unknown]
  - Pain [Unknown]
  - Abnormal uterine bleeding [Unknown]
  - Vaginal discharge [Unknown]
  - Bacterial vaginosis [Unknown]
  - Discomfort [Unknown]

NARRATIVE: CASE EVENT DATE: 20230501
